FAERS Safety Report 13980312 (Version 4)
Quarter: 2017Q4

REPORT INFORMATION
  Report Type: Spontaneous
  Country: US (occurrence: US)
  Receive Date: 20170917
  Receipt Date: 20171018
  Transmission Date: 20180321
  Serious: Yes (Hospitalization, Other)
  Sender: FDA-Public Use
  Company Number: US-BEH-2017083527

PATIENT
  Age: 58 Year
  Sex: Female
  Weight: 104.31 kg

DRUGS (41)
  1. GUAIFENESIN AND CODEINE PHOSPHATE [Concomitant]
     Active Substance: CODEINE PHOSPHATE\GUAIFENESIN
  2. SYMBICORT [Concomitant]
     Active Substance: BUDESONIDE\FORMOTEROL FUMARATE DIHYDRATE
  3. VITAMIN C [Concomitant]
     Active Substance: ASCORBIC ACID
  4. CYSTEINE HYDROCHLORIDE. [Concomitant]
     Active Substance: CYSTEINE HYDROCHLORIDE
  5. XANAX [Concomitant]
     Active Substance: ALPRAZOLAM
  6. BACTRIM [Concomitant]
     Active Substance: SULFAMETHOXAZOLE\TRIMETHOPRIM
  7. TYLENOL WITH CODEINE [Concomitant]
     Active Substance: ACETAMINOPHEN\CODEINE PHOSPHATE
  8. AZITHROMYCIN ANHYDROUS. [Concomitant]
     Active Substance: AZITHROMYCIN ANHYDROUS
  9. VICTOZA [Concomitant]
     Active Substance: LIRAGLUTIDE
  10. XYZAL [Concomitant]
     Active Substance: LEVOCETIRIZINE DIHYDROCHLORIDE
  11. CYMBALTA [Concomitant]
     Active Substance: DULOXETINE HYDROCHLORIDE
  12. CALCIMAX                           /00751520/ [Concomitant]
  13. NOVOLOG [Concomitant]
     Active Substance: INSULIN ASPART
  14. ZEMAIRA [Suspect]
     Active Substance: .ALPHA.1-PROTEINASE INHIBITOR HUMAN
     Dosage: UNK
     Route: 042
  15. ZEMAIRA [Suspect]
     Active Substance: .ALPHA.1-PROTEINASE INHIBITOR HUMAN
     Dosage: UNK
     Route: 042
  16. ZEMAIRA [Suspect]
     Active Substance: .ALPHA.1-PROTEINASE INHIBITOR HUMAN
     Dosage: 8 VIALS, QW
     Route: 042
     Dates: start: 20100301
  17. TRAMADOL. [Concomitant]
     Active Substance: TRAMADOL
  18. CEFEPIME [Concomitant]
     Active Substance: CEFEPIME HYDROCHLORIDE
     Dosage: UNK
     Route: 065
  19. PROGRAF [Concomitant]
     Active Substance: TACROLIMUS\TACROLIMUS ANHYDROUS
  20. ACYCLOVIR                          /00587301/ [Concomitant]
     Active Substance: ACYCLOVIR
  21. ZEMAIRA [Suspect]
     Active Substance: .ALPHA.1-PROTEINASE INHIBITOR HUMAN
     Indication: ALPHA-1 ANTI-TRYPSIN DEFICIENCY
     Dosage: 60 MG/KG, QW
     Route: 042
     Dates: start: 20121112
  22. MELATONINA + B6 [Concomitant]
  23. MAGNESIUM OXIDE. [Concomitant]
     Active Substance: MAGNESIUM OXIDE
  24. LYRICA [Concomitant]
     Active Substance: PREGABALIN
  25. NEXIUM [Concomitant]
     Active Substance: ESOMEPRAZOLE MAGNESIUM
  26. MULTIVITAMIN                       /00097801/ [Concomitant]
     Active Substance: VITAMINS
  27. CODEINE PHOSPHATE W/GUAIFENESIN [Concomitant]
     Active Substance: CODEINE PHOSPHATE\GUAIFENESIN
  28. CEFEPIME [Concomitant]
     Active Substance: CEFEPIME HYDROCHLORIDE
  29. SALINE                             /00075401/ [Concomitant]
     Active Substance: SODIUM CHLORIDE
  30. QNASL [Concomitant]
     Active Substance: BECLOMETHASONE DIPROPIONATE
  31. SODIUM CHLORIDE. [Concomitant]
     Active Substance: SODIUM CHLORIDE
  32. OXYGEN. [Concomitant]
     Active Substance: OXYGEN
  33. ETHAMBUTOL [Concomitant]
     Active Substance: ETHAMBUTOL HYDROCHLORIDE
  34. LEVEMIR [Concomitant]
     Active Substance: INSULIN DETEMIR
  35. STOOL SOFTENER (DOCUSATE) [Concomitant]
     Active Substance: DOCUSATE
  36. PREDNISONE. [Concomitant]
     Active Substance: PREDNISONE
  37. ALBUTEROL                          /00139501/ [Concomitant]
     Active Substance: ALBUTEROL
  38. CELLCEPT [Concomitant]
     Active Substance: MYCOPHENOLATE MOFETIL\MYCOPHENOLATE MOFETIL HYDROCHLORIDE
  39. VITAMIN D3 [Concomitant]
     Active Substance: CHOLECALCIFEROL
  40. SENOKOT [Concomitant]
     Active Substance: SENNOSIDES
  41. ZANTAC [Concomitant]
     Active Substance: RANITIDINE HYDROCHLORIDE

REACTIONS (13)
  - Central venous catheter removal [Unknown]
  - Central venous catheterisation [Unknown]
  - Fungal infection [Recovered/Resolved]
  - Vascular stent removal [Unknown]
  - Lower respiratory tract infection fungal [Unknown]
  - Pneumonia [Recovered/Resolved]
  - Systemic-pulmonary artery shunt [Unknown]
  - Lung transplant [Recovered/Resolved]
  - Oesophageal prosthesis insertion [Recovered/Resolved]
  - Bronchial secretion retention [Recovered/Resolved]
  - Tracheomalacia [Recovered/Resolved]
  - Post procedural pneumonia [Unknown]
  - Pneumothorax [Recovered/Resolved]

NARRATIVE: CASE EVENT DATE: 20140209
